FAERS Safety Report 17052912 (Version 1)
Quarter: 2019Q4

REPORT INFORMATION
  Report Type: Spontaneous
  Country: US (occurrence: US)
  Receive Date: 20191120
  Receipt Date: 20191120
  Transmission Date: 20200122
  Serious: No
  Sender: FDA-Public Use
  Company Number: US-ALVOGEN-2019-ALVOGEN-100024

PATIENT
  Age: 69 Year
  Sex: Female
  Weight: 77.11 kg

DRUGS (1)
  1. LISINOPRIL. [Suspect]
     Active Substance: LISINOPRIL
     Indication: HYPERTENSION
     Dosage: AT NIGHT
     Route: 048
     Dates: start: 1975

REACTIONS (1)
  - Blood cholesterol increased [Not Recovered/Not Resolved]
